FAERS Safety Report 23564817 (Version 1)
Quarter: 2024Q1

REPORT INFORMATION
  Report Type: Spontaneous
  Country: DK (occurrence: DK)
  Receive Date: 20240226
  Receipt Date: 20240226
  Transmission Date: 20240409
  Serious: Yes (Hospitalization)
  Sender: FDA-Public Use
  Company Number: None

PATIENT
  Age: 86 Year
  Sex: Female

DRUGS (2)
  1. OXAZEPAM [Suspect]
     Active Substance: OXAZEPAM
     Indication: Restlessness
     Dosage: TIME INTERVAL: AS NECESSARY: MAX 3 TIMES A DAY
     Route: 048
     Dates: start: 2021
  2. MORPHINE SULFATE [Suspect]
     Active Substance: MORPHINE SULFATE
     Indication: Anxiety
     Dosage: TIME INTERVAL: AS NECESSARY: MAX 6 TIMES A DAY.
     Route: 048
     Dates: start: 2023

REACTIONS (1)
  - Confusional state [Recovered/Resolved]

NARRATIVE: CASE EVENT DATE: 20231222
